FAERS Safety Report 21528242 (Version 2)
Quarter: 2022Q4

REPORT INFORMATION
  Report Type: Report from Study
  Country: US (occurrence: US)
  Receive Date: 20221031
  Receipt Date: 20221110
  Transmission Date: 20230113
  Serious: Yes (Hospitalization, Disabling)
  Sender: FDA-Public Use
  Company Number: US-NOVARTISPH-NVSC2022US229641

PATIENT
  Age: 63 Year
  Sex: Male
  Weight: 90.8 kg

DRUGS (10)
  1. LUCENTIS [Suspect]
     Active Substance: RANIBIZUMAB
     Indication: Neovascular age-related macular degeneration
     Dosage: 0.5 MG, Q4W (1 INJECTION IN EACH EYE, SAME DAY)
     Route: 042
     Dates: start: 2015
  2. LUCENTIS [Suspect]
     Active Substance: RANIBIZUMAB
     Indication: Choroidal neovascularisation
     Dosage: 0.5 MG, Q4W (1 INJECTION IN EACH EYE, SAME DAY )
     Route: 042
     Dates: start: 202201
  3. LIDOCAINE [Suspect]
     Active Substance: LIDOCAINE
     Indication: Hypoaesthesia
     Dosage: UNK (1 INJECTION IN EACH EYE PRIOR TO TREATMENT WITH AVASTIN, LUCENTIS, EYLEA,BEOVU)
     Route: 042
     Dates: start: 2014
  4. BEOVU [Suspect]
     Active Substance: BROLUCIZUMAB-DBLL
     Indication: Neovascular age-related macular degeneration
     Dosage: UNK
     Route: 042
     Dates: end: 202112
  5. BEOVU [Suspect]
     Active Substance: BROLUCIZUMAB-DBLL
     Indication: Choroidal neovascularisation
  6. EYLEA [Suspect]
     Active Substance: AFLIBERCEPT
     Indication: Neovascular age-related macular degeneration
     Dosage: UNK
     Route: 042
  7. EYLEA [Suspect]
     Active Substance: AFLIBERCEPT
     Indication: Choroidal neovascularisation
  8. AVASTIN [Suspect]
     Active Substance: BEVACIZUMAB
     Indication: Neovascular age-related macular degeneration
     Dosage: UNK, Q4W (1 INJECTION IN EACH EYE, SAME DAY, ONGOING NO)
     Route: 042
     Dates: start: 2014
  9. AVASTIN [Suspect]
     Active Substance: BEVACIZUMAB
     Indication: Choroidal neovascularisation
  10. BROLUCIZUMAB [Concomitant]
     Active Substance: BROLUCIZUMAB
     Indication: Product used for unknown indication
     Dosage: UNK
     Route: 065

REACTIONS (5)
  - Cataract [Recovered/Resolved]
  - Retinal scar [Not Recovered/Not Resolved]
  - Blindness [Not Recovered/Not Resolved]
  - Pain [Unknown]
  - Off label use [Unknown]

NARRATIVE: CASE EVENT DATE: 20140101
